FAERS Safety Report 20324634 (Version 1)
Quarter: 2022Q1

REPORT INFORMATION
  Report Type: Spontaneous
  Country: US (occurrence: US)
  Receive Date: 20220111
  Receipt Date: 20220111
  Transmission Date: 20220423
  Serious: No
  Sender: FDA-Public Use
  Company Number: US-FOUNDATIONCONSUMERHC-2021-US-025576

PATIENT
  Age: 30 Year
  Sex: Female
  Weight: 82.1 kg

DRUGS (2)
  1. PLAN B ONE-STEP [Suspect]
     Active Substance: LEVONORGESTREL
     Indication: Post coital contraception
     Dosage: 1.5 MG
     Route: 048
     Dates: start: 20211117, end: 20211117
  2. NITROFURANTOIN [Suspect]
     Active Substance: NITROFURANTOIN
     Dates: start: 20211123

REACTIONS (2)
  - Vaginal haemorrhage [Not Recovered/Not Resolved]
  - Urinary tract infection [Unknown]

NARRATIVE: CASE EVENT DATE: 20211123
